FAERS Safety Report 15935706 (Version 2)
Quarter: 2019Q1

REPORT INFORMATION
  Report Type: Spontaneous
  Country: AT (occurrence: AT)
  Receive Date: 20190208
  Receipt Date: 20190219
  Transmission Date: 20190417
  Serious: Yes (Death, Hospitalization)
  Sender: FDA-Public Use
  Company Number: AT-B.I. PHARMACEUTICALS,INC./RIDGEFIELD-2019-BI-005089

PATIENT
  Age: 87 Year
  Sex: Female

DRUGS (2)
  1. PRADAXA [Suspect]
     Active Substance: DABIGATRAN ETEXILATE MESYLATE
     Indication: ATRIAL FIBRILLATION
     Route: 065
  2. PRADAXA [Suspect]
     Active Substance: DABIGATRAN ETEXILATE MESYLATE
     Indication: ARRHYTHMIA

REACTIONS (38)
  - Death [Fatal]
  - Oedema peripheral [Unknown]
  - Haemorrhagic erosive gastritis [Unknown]
  - Insomnia [Unknown]
  - Weight decreased [Unknown]
  - Aortic arteriosclerosis [Unknown]
  - Osteoarthritis [Unknown]
  - Seizure [Unknown]
  - Skin ulcer [Unknown]
  - Anaemia [Unknown]
  - Streptococcal sepsis [Unknown]
  - Gastrointestinal haemorrhage [Unknown]
  - Hypertension [Unknown]
  - Varicose vein [Unknown]
  - Nocturia [Unknown]
  - Hyperkalaemia [Unknown]
  - Anticoagulation drug level above therapeutic [Unknown]
  - Musculoskeletal disorder [Unknown]
  - Vein disorder [Unknown]
  - Loss of consciousness [Unknown]
  - Cardiorenal syndrome [Unknown]
  - Cytomegalovirus test positive [Unknown]
  - Decreased appetite [Unknown]
  - Pleural effusion [Unknown]
  - Hypothyroidism [Unknown]
  - Hepatitis C antibody positive [Unknown]
  - Haematoma [Unknown]
  - Inflammation [Unknown]
  - Diarrhoea [Unknown]
  - Tricuspid valve incompetence [Unknown]
  - Mitral valve incompetence [Unknown]
  - General physical health deterioration [Unknown]
  - Pulse absent [Unknown]
  - Faecaloma [Unknown]
  - Pulmonary hypertension [Unknown]
  - Peripheral swelling [Unknown]
  - Oedema [Unknown]
  - Hypertensive heart disease [Unknown]

NARRATIVE: CASE EVENT DATE: 201812
